FAERS Safety Report 21471522 (Version 1)
Quarter: 2022Q4

REPORT INFORMATION
  Report Type: Spontaneous
  Country: US (occurrence: None)
  Receive Date: 20221017
  Receipt Date: 20221017
  Transmission Date: 20230113
  Serious: Yes (Hospitalization)
  Sender: FDA-Public Use
  Company Number: None

PATIENT
  Age: 22 Year
  Sex: Female
  Weight: 72 kg

DRUGS (1)
  1. NORETHINDRONE [Suspect]
     Active Substance: NORETHINDRONE
     Indication: Contraception
     Dates: start: 20220227, end: 20220807

REACTIONS (21)
  - Feeling abnormal [None]
  - Vision blurred [None]
  - Dysarthria [None]
  - Sluggishness [None]
  - Burning sensation [None]
  - Pruritus [None]
  - Skin disorder [None]
  - Pain [None]
  - Syncope [None]
  - Loss of consciousness [None]
  - Movement disorder [None]
  - Sensory loss [None]
  - Musculoskeletal stiffness [None]
  - Gait inability [None]
  - Panic attack [None]
  - Dyspnoea [None]
  - Anxiety [None]
  - Movement disorder [None]
  - Hypoaesthesia [None]
  - Product availability issue [None]
  - Therapy interrupted [None]

NARRATIVE: CASE EVENT DATE: 20220824
